FAERS Safety Report 4384795-1 (Version None)
Quarter: 2004Q2

REPORT INFORMATION
  Report Type: 
  Country: None (occurrence: None)
  Receive Date: 20040625
  Receipt Date: 20040621
  Transmission Date: 20050107
  Serious: Yes (Hospitalization, Disabling)
  Sender: FDA-Public Use
  Company Number: 200416267GDDC

PATIENT
  Age: 63 Year
  Sex: Female
  Weight: 96.6 kg

DRUGS (7)
  1. GAVISCON [Suspect]
     Indication: GASTROOESOPHAGEAL REFLUX DISEASE
     Dosage: DOSE: UNK
     Route: 048
  2. ESOMEPRAZOLE [Concomitant]
     Dosage: DOSE: UNK
  3. VALSARTAN [Concomitant]
     Dosage: DOSE: UNK
  4. VERAPAMIL [Concomitant]
     Dosage: DOSE: UNK
  5. HYDROCHLOROTHIAZIDE [Concomitant]
     Dosage: DOSE: UNK
  6. ACETAMINOPHEN [Concomitant]
     Dosage: DOSE: UNK
  7. STRESSTABS [Concomitant]
     Dosage: DOSE: UNK

REACTIONS (8)
  - ARRHYTHMIA [None]
  - BLOOD PRESSURE SYSTOLIC INCREASED [None]
  - CHEST DISCOMFORT [None]
  - DYSPNOEA [None]
  - FLUID RETENTION [None]
  - HYPERTENSION [None]
  - LUNG NEOPLASM MALIGNANT [None]
  - PHARMACEUTICAL PRODUCT COMPLAINT [None]
